FAERS Safety Report 10787139 (Version 2)
Quarter: 2015Q4

REPORT INFORMATION
  Report Type: Spontaneous
  Country: US (occurrence: US)
  Receive Date: 20151012
  Receipt Date: 20151012
  Transmission Date: 20160304
  Serious: No
  Sender: FDA-Public Use
  Company Number: US-GLAXOSMITHKLINE-US2015GSK018296

PATIENT
  Age: 73 Year
  Sex: Male

DRUGS (5)
  1. VENTOLIN HFA [Suspect]
     Active Substance: ALBUTEROL SULFATE
     Indication: ASTHMA
     Dosage: 2 PUFF(S), BID
     Route: 055
     Dates: start: 2010
  2. ZYRTEC [Concomitant]
     Active Substance: CETIRIZINE HYDROCHLORIDE
  3. CHLORASEPTIC SORE THROAT [Concomitant]
     Active Substance: PHENOL
  4. ADVAIR HFA [Suspect]
     Active Substance: FLUTICASONE PROPIONATE\SALMETEROL XINAFOATE
     Indication: ASTHMA
     Dosage: 2 PUFF(S), BID
     Route: 055
     Dates: start: 2013
  5. SUCRETS [Concomitant]
     Active Substance: DYCLONINE HYDROCHLORIDE\HEXYLRESORCINOL\MENTHOL\PECTIN

REACTIONS (6)
  - Sneezing [Recovering/Resolving]
  - Hypersensitivity [Unknown]
  - Oropharyngeal pain [Recovering/Resolving]
  - Dysphonia [Recovering/Resolving]
  - Lacrimation increased [Recovering/Resolving]
  - Drug dose omission [Unknown]

NARRATIVE: CASE EVENT DATE: 20150930
